FAERS Safety Report 23153352 (Version 1)
Quarter: 2023Q4

REPORT INFORMATION
  Report Type: Spontaneous
  Country: US (occurrence: US)
  Receive Date: 20231107
  Receipt Date: 20231107
  Transmission Date: 20240109
  Serious: Yes (Hospitalization, Other)
  Sender: FDA-Public Use
  Company Number: US-HIKMA PHARMACEUTICALS USA INC.-US-H14001-23-66602

PATIENT
  Age: 16 Year
  Sex: Male

DRUGS (16)
  1. PREDNISONE [Concomitant]
     Active Substance: PREDNISONE
     Indication: B-cell type acute leukaemia
     Dosage: STANDARD DOSES
     Route: 065
  2. PREDNISONE [Concomitant]
     Active Substance: PREDNISONE
     Indication: Hyperbilirubinaemia
  3. PREDNISONE [Concomitant]
     Active Substance: PREDNISONE
     Indication: Hypertransaminasaemia
  4. PREDNISONE [Concomitant]
     Active Substance: PREDNISONE
     Indication: Ocular icterus
  5. VINCRISTINE [Concomitant]
     Active Substance: VINCRISTINE
     Indication: Hyperbilirubinaemia
     Dosage: STANDARD DOSES
     Route: 065
  6. VINCRISTINE [Concomitant]
     Active Substance: VINCRISTINE
     Indication: Hypertransaminasaemia
  7. VINCRISTINE [Concomitant]
     Active Substance: VINCRISTINE
     Indication: Ocular icterus
  8. VINCRISTINE [Concomitant]
     Active Substance: VINCRISTINE
     Indication: B-cell type acute leukaemia
  9. ALLOPURINOL [Interacting]
     Active Substance: ALLOPURINOL
     Indication: B-cell type acute leukaemia
     Dosage: 100 MILLIGRAM, QD
     Route: 065
  10. MERCAPTOPURINE [Interacting]
     Active Substance: MERCAPTOPURINE
     Indication: B-cell type acute leukaemia
     Dosage: 37.5 MILLIGRAM/SQ. METER, QD, REDUCED BY 50 %
     Route: 065
  11. MERCAPTOPURINE [Interacting]
     Active Substance: MERCAPTOPURINE
     Indication: Hyperbilirubinaemia
     Dosage: STANDARD DOSES
     Route: 065
  12. MERCAPTOPURINE [Interacting]
     Active Substance: MERCAPTOPURINE
     Indication: Hypertransaminasaemia
  13. METHOTREXATE [Interacting]
     Active Substance: METHOTREXATE
     Indication: B-cell type acute leukaemia
     Dosage: STANDARD DOSES
     Route: 065
  14. METHOTREXATE [Interacting]
     Active Substance: METHOTREXATE
     Indication: Hyperbilirubinaemia
  15. METHOTREXATE [Interacting]
     Active Substance: METHOTREXATE
     Indication: Hypertransaminasaemia
  16. METHOTREXATE [Interacting]
     Active Substance: METHOTREXATE
     Indication: Ocular icterus

REACTIONS (2)
  - Anaemia megaloblastic [Unknown]
  - Drug interaction [Unknown]
